APPROVED DRUG PRODUCT: KETOTIFEN FUMARATE
Active Ingredient: KETOTIFEN FUMARATE
Strength: EQ 0.025% BASE
Dosage Form/Route: SOLUTION/DROPS;OPHTHALMIC
Application: A077354 | Product #001
Applicant: APOTEX INC
Approved: May 9, 2006 | RLD: No | RS: No | Type: OTC